FAERS Safety Report 23913146 (Version 1)
Quarter: 2024Q2

REPORT INFORMATION
  Report Type: Spontaneous
  Country: JP (occurrence: JP)
  Receive Date: 20240529
  Receipt Date: 20240529
  Transmission Date: 20240716
  Serious: Yes (Death, Other)
  Sender: FDA-Public Use
  Company Number: JP-DSJP-DSJ-2024-122972

PATIENT
  Age: 69 Year
  Sex: Female

DRUGS (3)
  1. DENOSUMAB [Suspect]
     Active Substance: DENOSUMAB
     Indication: Product used for unknown indication
     Dosage: 12MG
     Route: 058
     Dates: start: 2015, end: 2015
  2. GEMCITABINE [Concomitant]
     Active Substance: GEMCITABINE
     Indication: Gallbladder cancer metastatic
     Dosage: 1000MG
     Route: 042
     Dates: start: 2015, end: 2015
  3. CISPLATIN [Concomitant]
     Active Substance: CISPLATIN
     Indication: Gallbladder cancer metastatic
     Dosage: 32.5MG
     Route: 042
     Dates: start: 2015, end: 2015

REACTIONS (1)
  - Multiple organ dysfunction syndrome [Fatal]

NARRATIVE: CASE EVENT DATE: 20151101
